FAERS Safety Report 14794663 (Version 3)
Quarter: 2018Q3

REPORT INFORMATION
  Report Type: Spontaneous
  Country: JP (occurrence: JP)
  Receive Date: 20180423
  Receipt Date: 20180813
  Transmission Date: 20181010
  Serious: Yes (Hospitalization, Other)
  Sender: FDA-Public Use
  Company Number: JP-JNJFOC-20180425626

PATIENT
  Age: 73 Year
  Sex: Male
  Weight: 55 kg

DRUGS (13)
  1. XARELTO [Suspect]
     Active Substance: RIVAROXABAN
     Indication: CEREBROVASCULAR ACCIDENT PROPHYLAXIS
     Dosage: QD,MORNING ADMINISTRATION
     Route: 048
     Dates: start: 20180326, end: 20180328
  2. BAYASPIRIN [Suspect]
     Active Substance: ASPIRIN
     Indication: THROMBOTIC CEREBRAL INFARCTION
     Route: 065
     Dates: start: 20180316, end: 20180326
  3. BENZBROMARONE [Concomitant]
     Active Substance: BENZBROMARONE
     Indication: PRODUCT USED FOR UNKNOWN INDICATION
     Route: 048
     Dates: start: 20180310, end: 20180502
  4. XARELTO [Suspect]
     Active Substance: RIVAROXABAN
     Indication: ATRIAL FIBRILLATION
     Dosage: QD,MORNING ADMINISTRATION
     Route: 048
     Dates: start: 20180326, end: 20180328
  5. TADALAFIL [Concomitant]
     Active Substance: TADALAFIL
     Indication: PRODUCT USED FOR UNKNOWN INDICATION
     Route: 048
     Dates: start: 20180310, end: 20180502
  6. XARELTO [Suspect]
     Active Substance: RIVAROXABAN
     Indication: THROMBOSIS PROPHYLAXIS
     Dosage: QD,MORNING ADMINISTRATION
     Route: 048
     Dates: start: 20180326, end: 20180328
  7. AMLODIPINE [Concomitant]
     Active Substance: AMLODIPINE BESYLATE
     Indication: PRODUCT USED FOR UNKNOWN INDICATION
     Route: 048
     Dates: start: 20180310, end: 20180531
  8. XARELTO [Suspect]
     Active Substance: RIVAROXABAN
     Indication: EMBOLIC CEREBRAL INFARCTION
     Dosage: QD,MORNING ADMINISTRATION
     Route: 048
     Dates: start: 20180326, end: 20180328
  9. LIPIDIL [Concomitant]
     Active Substance: FENOFIBRATE
     Indication: PRODUCT USED FOR UNKNOWN INDICATION
     Route: 048
     Dates: start: 20180310, end: 20180502
  10. FLIVAS [Concomitant]
     Active Substance: NAFTOPIDIL
     Indication: PRODUCT USED FOR UNKNOWN INDICATION
     Route: 048
     Dates: start: 20180310, end: 20180502
  11. ROZEREM [Concomitant]
     Active Substance: RAMELTEON
     Indication: INSOMNIA
     Route: 048
     Dates: start: 20180312, end: 20180801
  12. HERBAL EXTRACT NOS [Concomitant]
     Active Substance: HERBALS
     Indication: IRRITABILITY
     Route: 048
     Dates: start: 20180312, end: 20180801
  13. HERBAL EXTRACT NOS [Concomitant]
     Active Substance: HERBALS
     Indication: INSOMNIA
     Route: 048
     Dates: start: 20180312, end: 20180801

REACTIONS (14)
  - Intracranial tumour haemorrhage [Unknown]
  - Atrial flutter [Unknown]
  - Gastrostomy [Unknown]
  - Decreased activity [Unknown]
  - Eating disorder [Unknown]
  - Atrial fibrillation [Unknown]
  - Drug interaction [Unknown]
  - Brain oedema [Recovering/Resolving]
  - Hemiplegia [Unknown]
  - Labelled drug-drug interaction medication error [Unknown]
  - Malignant glioma [Not Recovered/Not Resolved]
  - Cerebellar infarction [Unknown]
  - Intracranial tumour haemorrhage [Not Recovered/Not Resolved]
  - Loss of personal independence in daily activities [Unknown]

NARRATIVE: CASE EVENT DATE: 2018
